FAERS Safety Report 17298016 (Version 1)
Quarter: 2020Q1

REPORT INFORMATION
  Report Type: Report from Study
  Country: BR (occurrence: BR)
  Receive Date: 20200121
  Receipt Date: 20200121
  Transmission Date: 20200409
  Serious: Yes (Other)
  Sender: FDA-Public Use
  Company Number: NVSC2020BR012153

PATIENT
  Sex: Male

DRUGS (2)
  1. DIOVAN [Suspect]
     Active Substance: VALSARTAN
     Indication: BLOOD PRESSURE INCREASED
     Dosage: UNK CONC 320 MG
     Route: 065
     Dates: start: 2009
  2. DIOVAN [Suspect]
     Active Substance: VALSARTAN
     Dosage: 2 DF OF CONC. 160 MG
     Route: 065

REACTIONS (2)
  - Drug dependence [Unknown]
  - Blood pressure increased [Recovered/Resolved]

NARRATIVE: CASE EVENT DATE: 2009
